FAERS Safety Report 7132747-0 (Version None)
Quarter: 2010Q4

REPORT INFORMATION
  Report Type: 
  Country: None (occurrence: None)
  Receive Date: 20101117
  Receipt Date: 20101107
  Transmission Date: 20110411
  Serious: Yes (Other)
  Sender: FDA-Public Use
  Company Number: ZYD-10-AE-274

PATIENT
  Age: 51 Year
  Sex: Male

DRUGS (1)
  1. RIBAVIRIN [Suspect]

REACTIONS (3)
  - DIARRHOEA [None]
  - PAIN [None]
  - PLATELET DISORDER [None]
